FAERS Safety Report 6221929-8 (Version None)
Quarter: 2009Q2

REPORT INFORMATION
  Report Type: 
  Country: None (occurrence: None)
  Receive Date: 20090611
  Receipt Date: 20090601
  Transmission Date: 20091009
  Serious: Yes (Life-Threatening, Hospitalization, Disabling, Other)
  Sender: FDA-Public Use
  Company Number: JP-PFIZER INC-2009190388

PATIENT
  Age: 59 Year

DRUGS (11)
  1. SUNITINIB MALATE [Suspect]
     Indication: RENAL CELL CARCINOMA
     Dosage: 50 MG, 1X/DAY
     Route: 048
     Dates: start: 20090216, end: 20090303
  2. TAKEPRON [Concomitant]
     Dosage: UNK
     Route: 048
  3. MAG-LAX [Concomitant]
     Dosage: UNK
     Route: 048
  4. THYRADIN S [Concomitant]
     Dosage: UNK
     Route: 048
  5. VOLTAREN [Concomitant]
     Dosage: UNK
     Route: 048
  6. CYTOTEC [Concomitant]
     Dosage: UNK
     Route: 048
  7. OXINORM [Concomitant]
     Dosage: UNK
     Route: 048
  8. DIOVANE [Concomitant]
     Dosage: UNK
     Route: 048
  9. GABAPENTIN [Concomitant]
     Dosage: UNK
     Route: 048
  10. POLAPREZINC [Concomitant]
     Dosage: UNK
     Route: 048
  11. OXYCONTIN [Concomitant]
     Dosage: UNK
     Route: 048

REACTIONS (7)
  - FLUSHING [None]
  - INDURATION [None]
  - INTESTINAL PERFORATION [None]
  - MELAENA [None]
  - NAUSEA [None]
  - PLATELET COUNT DECREASED [None]
  - RASH [None]
